FAERS Safety Report 9158030 (Version 1)
Quarter: 2013Q1

REPORT INFORMATION
  Report Type: Spontaneous
  Country: FR (occurrence: FR)
  Receive Date: 20130312
  Receipt Date: 20130312
  Transmission Date: 20140127
  Serious: Yes (Hospitalization)
  Sender: FDA-Public Use
  Company Number: FR-ROCHE-1200598

PATIENT
  Age: 45 Year
  Sex: Male

DRUGS (6)
  1. PEGASYS [Suspect]
     Indication: PRODUCT USED FOR UNKNOWN INDICATION
     Route: 058
     Dates: start: 20120709
  2. COPEGUS [Suspect]
     Indication: PRODUCT USED FOR UNKNOWN INDICATION
     Route: 048
     Dates: start: 20120709
  3. NEORECORMON [Concomitant]
  4. ZARZIO [Concomitant]
     Route: 065
     Dates: start: 20121208, end: 20121212
  5. ZARZIO [Concomitant]
     Route: 065
     Dates: start: 20121214
  6. IMOVANE [Concomitant]
     Route: 065

REACTIONS (2)
  - Pancytopenia [Recovering/Resolving]
  - Depression [Recovering/Resolving]
